FAERS Safety Report 19657160 (Version 1)
Quarter: 2021Q3

REPORT INFORMATION
  Report Type: Spontaneous
  Country: DE (occurrence: DE)
  Receive Date: 20210804
  Receipt Date: 20210804
  Transmission Date: 20211014
  Serious: Yes (Other)
  Sender: FDA-Public Use
  Company Number: DE-MYLANLABS-2021M1047653

PATIENT
  Age: 28 Year
  Sex: Female

DRUGS (3)
  1. VITAMIN D                          /00107901/ [Concomitant]
     Active Substance: ERGOCALCIFEROL
     Indication: PRODUCT USED FOR UNKNOWN INDICATION
     Dosage: UNK
     Route: 065
  2. IBANDRONATE MYLAN [Suspect]
     Active Substance: IBANDRONIC ACID
     Indication: OSTEOPOROTIC FRACTURE
     Dosage: 3 MG, Q3MO
     Route: 042
     Dates: end: 200409
  3. CALCIUM [Concomitant]
     Active Substance: CALCIUM
     Indication: PRODUCT USED FOR UNKNOWN INDICATION
     Dosage: UNK
     Route: 065

REACTIONS (1)
  - Thoracic vertebral fracture [Unknown]

NARRATIVE: CASE EVENT DATE: 200105
